FAERS Safety Report 7007223-6 (Version None)
Quarter: 2010Q3

REPORT INFORMATION
  Report Type: 
  Country: None (occurrence: None)
  Receive Date: 20100922
  Receipt Date: 20100910
  Transmission Date: 20110219
  Serious: Yes (Death)
  Sender: FDA-Public Use
  Company Number: ES-BAYER-201027670GPV

PATIENT
  Age: 68 Year
  Sex: Female
  Weight: 53 kg

DRUGS (6)
  1. SORAFENIB [Suspect]
     Indication: HEPATIC NEOPLASM MALIGNANT
     Dosage: AS USED: 800 MG  UNIT DOSE: 200 MG
     Route: 048
     Dates: start: 20100526, end: 20100531
  2. FUROSEMIDE [Concomitant]
     Dosage: AS USED: 40 MG
  3. SPIRONOLACTONE [Concomitant]
     Dosage: AS USED: 100 MG
  4. VITAMINA K [Concomitant]
     Dosage: 1 AMP/DAY
  5. OMEPRAZOLE [Concomitant]
     Dosage: AS USED: 20 MG
  6. NUTRICOMP HEPA [Concomitant]
     Dosage: 500 ML/DAY

REACTIONS (1)
  - ACUTE HEPATIC FAILURE [None]
